FAERS Safety Report 7913693-9 (Version None)
Quarter: 2011Q4

REPORT INFORMATION
  Report Type: 
  Country: None (occurrence: None)
  Receive Date: 20111110
  Receipt Date: 20111102
  Transmission Date: 20120403
  Serious: Yes (Death, Life-Threatening, Hospitalization)
  Sender: FDA-Public Use
  Company Number: CLOF-10397

PATIENT
  Age: 70 Year
  Sex: Male

DRUGS (1)
  1. CLOFARABINE (CLOFARABINE) SOLUTION FOR INFUSION [Suspect]
     Indication: ACUTE LEUKAEMIA
     Dosage: INTRAVENOUS
     Route: 042
     Dates: start: 20061018, end: 20061022

REACTIONS (23)
  - EPISTAXIS [None]
  - PLEURAL EFFUSION [None]
  - BLOOD POTASSIUM INCREASED [None]
  - ESCHERICHIA SEPSIS [None]
  - HALLUCINATION [None]
  - CARDIAC FAILURE [None]
  - OXYGEN SATURATION DECREASED [None]
  - BLOOD MAGNESIUM DECREASED [None]
  - BLOOD PHOSPHORUS INCREASED [None]
  - BLOOD BILIRUBIN INCREASED [None]
  - RENAL FAILURE [None]
  - DIARRHOEA [None]
  - BONE MARROW FAILURE [None]
  - NEUTROPENIC SEPSIS [None]
  - ORAL HERPES [None]
  - PLATELET COUNT DECREASED [None]
  - BLOOD ALBUMIN DECREASED [None]
  - BLOOD CALCIUM DECREASED [None]
  - BLOOD FIBRINOGEN INCREASED [None]
  - CONFUSIONAL STATE [None]
  - RESPIRATORY DISORDER [None]
  - AGITATION [None]
  - FEBRILE CONVULSION [None]
